FAERS Safety Report 4788480-3 (Version None)
Quarter: 2005Q4

REPORT INFORMATION
  Report Type: 
  Country: None (occurrence: None)
  Receive Date: 20051005
  Receipt Date: 20050929
  Transmission Date: 20060501
  Serious: Yes (Life-Threatening)
  Sender: FDA-Public Use
  Company Number: 2005SE05477

PATIENT
  Age: 670 Day
  Sex: Male
  Weight: 12 kg

DRUGS (4)
  1. DIPRIVAN [Suspect]
     Indication: GENERAL ANAESTHESIA
     Route: 042
     Dates: start: 20041123, end: 20041123
  2. OXYGEN, NITROGEN MONOXIDE [Concomitant]
     Indication: GENERAL ANAESTHESIA
     Route: 055
     Dates: start: 20041123, end: 20041123
  3. DORMICUM SYRUP [Concomitant]
     Indication: GENERAL ANAESTHESIA
     Route: 048
  4. DORMICUM SYRUP [Concomitant]
     Indication: PREMEDICATION
     Route: 048

REACTIONS (6)
  - APNOEA [None]
  - BUNDLE BRANCH BLOCK [None]
  - BUNDLE BRANCH BLOCK RIGHT [None]
  - HEART RATE IRREGULAR [None]
  - HYPOTENSION [None]
  - OVERDOSE [None]
